FAERS Safety Report 4395166-6 (Version None)
Quarter: 2004Q3

REPORT INFORMATION
  Report Type: 
  Country: None (occurrence: None)
  Receive Date: 20040706
  Receipt Date: 20040621
  Transmission Date: 20050211
  Serious: Yes (Hospitalization, Disabling)
  Sender: FDA-Public Use
  Company Number: 2004GB01502

PATIENT
  Age: 69 Year
  Sex: Female
  Weight: 89.5 kg

DRUGS (9)
  1. LISINOPRIL [Suspect]
     Indication: CARDIAC FAILURE CONGESTIVE
     Dosage: 1 DF DAILY PO
     Route: 048
     Dates: start: 20020621, end: 20040423
  2. ASPIRIN [Concomitant]
  3. NITROGLYCERIN [Concomitant]
  4. INSULIN NORDISK MIXTARD (PORK) [Concomitant]
  5. THYROXINE [Concomitant]
  6. ACETAMINOPHEN [Concomitant]
  7. ATORVASTATIN CALCIUM [Concomitant]
  8. FELODIPINE [Concomitant]
  9. SPIRONOLACTONE [Concomitant]

REACTIONS (1)
  - RENAL FAILURE ACUTE [None]
